FAERS Safety Report 5863179-0 (Version None)
Quarter: 2008Q3

REPORT INFORMATION
  Report Type: 
  Country: None (occurrence: None)
  Receive Date: 20080828
  Receipt Date: 20080820
  Transmission Date: 20090109
  Serious: Yes (Hospitalization, Other)
  Sender: FDA-Public Use
  Company Number: FR-ROCHE-582238

PATIENT
  Sex: Female

DRUGS (4)
  1. NAPROXEN SODIUM [Suspect]
     Indication: DRUG USE FOR UNKNOWN INDICATION
     Route: 048
     Dates: end: 20080301
  2. METHOTREXATE [Suspect]
     Indication: JUVENILE ARTHRITIS
     Route: 058
     Dates: start: 20070808
  3. ENBREL [Suspect]
     Indication: JUVENILE ARTHRITIS
     Dosage: STRENGTH AND FORMULATION: INJECTABLE SOLUTION
     Route: 058
     Dates: start: 20071003, end: 20080212
  4. SKENAN [Concomitant]
     Indication: ANALGESIC THERAPY
     Route: 048

REACTIONS (11)
  - ARTHRITIS [None]
  - ASTHENIA [None]
  - CYTOLYTIC HEPATITIS [None]
  - DIPLOPIA [None]
  - EPISTAXIS [None]
  - GASTRITIS HAEMORRHAGIC [None]
  - HEADACHE [None]
  - INJECTION SITE HYPERSENSITIVITY [None]
  - INJECTION SITE OEDEMA [None]
  - MOBILITY DECREASED [None]
  - RECTAL HAEMORRHAGE [None]
